FAERS Safety Report 10018469 (Version 1)
Quarter: 2014Q1

REPORT INFORMATION
  Report Type: Spontaneous
  Country: US (occurrence: US)
  Receive Date: 20140318
  Receipt Date: 20140318
  Transmission Date: 20141002
  Serious: Yes (Hospitalization, Other)
  Sender: FDA-Public Use
  Company Number: US-B.I. PHARMACEUTICALS,INC./RIDGEFIELD-2014-BI-10812BP

PATIENT
  Sex: Female

DRUGS (9)
  1. ZANTAC (RANITIDINE HYDROCHLORIDE) [Suspect]
     Indication: DYSPEPSIA
     Dosage: 150 MG
     Route: 048
     Dates: start: 2010, end: 2013
  2. LISINOPRIL [Concomitant]
     Indication: HYPERTENSION
     Route: 048
  3. TAMOXIFEN [Concomitant]
     Indication: BREAST CANCER
     Route: 048
  4. ADVAIR [Concomitant]
     Route: 055
  5. PROAIR [Concomitant]
     Route: 055
  6. FLONASE [Concomitant]
     Route: 045
  7. ASPIRIN [Concomitant]
     Route: 048
  8. VITAMIN D3 [Concomitant]
     Route: 048
  9. ZANTAC PRESCRIPTION [Concomitant]
     Indication: DYSPEPSIA
     Dosage: 150 MG
     Route: 048

REACTIONS (10)
  - Nystagmus [Not Recovered/Not Resolved]
  - Inner ear disorder [Recovered/Resolved]
  - Deafness [Not Recovered/Not Resolved]
  - Dizziness [Not Recovered/Not Resolved]
  - Balance disorder [Not Recovered/Not Resolved]
  - Tinnitus [Not Recovered/Not Resolved]
  - Impaired driving ability [Not Recovered/Not Resolved]
  - Faeces discoloured [Not Recovered/Not Resolved]
  - Blood pressure abnormal [Recovered/Resolved]
  - Eye movement disorder [Unknown]
